FAERS Safety Report 9226486 (Version 2)
Quarter: 2013Q2

REPORT INFORMATION
  Report Type: Spontaneous
  Country: US (occurrence: US)
  Receive Date: 20130411
  Receipt Date: 20130611
  Transmission Date: 20140414
  Serious: Yes (Other)
  Sender: FDA-Public Use
  Company Number: US-BRISTOL-MYERS SQUIBB COMPANY-18767301

PATIENT
  Age: 55 Year
  Sex: Female
  Weight: 103.85 kg

DRUGS (10)
  1. BYETTA [Suspect]
     Indication: TYPE 2 DIABETES MELLITUS
     Route: 058
     Dates: start: 20061206, end: 20120823
  2. METFORMIN [Concomitant]
     Dosage: 500MG WITH BREAKFAST,1000MG WITH SUPPER
     Route: 048
     Dates: start: 20111111
  3. LEVOTHYROXINE [Concomitant]
  4. CRESTOR [Concomitant]
     Dosage: TAB
     Route: 048
  5. FENOFIBRATE [Concomitant]
     Dosage: TAB
     Route: 048
  6. COQ10 [Concomitant]
     Dosage: CAPS
     Route: 048
     Dates: start: 20120201
  7. CALCIUM + VITAMIN D [Concomitant]
  8. OMEGA-3 [Concomitant]
     Dosage: CAPS
     Route: 048
  9. SYNTHROID [Concomitant]
     Dosage: FORMULATION-150MCG TAB
     Route: 048
  10. BUPROPION HCL [Concomitant]
     Dosage: TAB

REACTIONS (1)
  - Papillary thyroid cancer [Unknown]
